FAERS Safety Report 22383096 (Version 1)
Quarter: 2023Q2

REPORT INFORMATION
  Report Type: Report from Study
  Country: CA (occurrence: CA)
  Receive Date: 20230530
  Receipt Date: 20230530
  Transmission Date: 20230721
  Serious: Yes (Other)
  Sender: FDA-Public Use
  Company Number: CA-002147023-NVSC2023CA120455

PATIENT
  Sex: Male

DRUGS (3)
  1. ATORVASTATIN [Suspect]
     Active Substance: ATORVASTATIN
     Indication: Arteriosclerosis
     Dosage: 10 MG, EVERY SECOND DAY (NO DATES PROVIDED)
     Route: 058
  2. ATORVASTATIN [Suspect]
     Active Substance: ATORVASTATIN
     Indication: Type IIa hyperlipidaemia
  3. EZETIMIBE [Suspect]
     Active Substance: EZETIMIBE
     Indication: Product used for unknown indication
     Dosage: UNK
     Route: 065

REACTIONS (7)
  - Carotid arteriosclerosis [Unknown]
  - Arteriosclerosis coronary artery [Unknown]
  - Peripheral arterial occlusive disease [Unknown]
  - Blood triglycerides increased [Unknown]
  - Low density lipoprotein abnormal [Unknown]
  - Drug intolerance [Unknown]
  - Incorrect route of product administration [Unknown]
